FAERS Safety Report 7983854-1 (Version None)
Quarter: 2011Q4

REPORT INFORMATION
  Report Type: 
  Country: None (occurrence: None)
  Receive Date: 20111216
  Receipt Date: 20111207
  Transmission Date: 20120403
  Serious: Yes (Hospitalization)
  Sender: FDA-Public Use
  Company Number: US-BIOGENIDEC-2011BI037998

PATIENT
  Age: 59 Year
  Sex: Female

DRUGS (7)
  1. OXYCONTIN [Concomitant]
     Indication: PAIN IN EXTREMITY
  2. MORPHINE [Concomitant]
     Indication: PAIN IN EXTREMITY
  3. OXYCONTIN [Concomitant]
     Indication: MUSCULOSKELETAL PAIN
  4. MORPHINE [Concomitant]
     Indication: MUSCULOSKELETAL PAIN
  5. TYSABRI [Suspect]
     Route: 042
     Dates: start: 20110822
  6. TYSABRI [Suspect]
     Indication: MULTIPLE SCLEROSIS
     Route: 042
     Dates: start: 20061206
  7. AMPYRA [Concomitant]
     Dates: start: 20110401

REACTIONS (6)
  - OEDEMA PERIPHERAL [None]
  - MULTIPLE SCLEROSIS [None]
  - CATHETER PLACEMENT [None]
  - INFUSION SITE EXTRAVASATION [None]
  - MULTIPLE SCLEROSIS RELAPSE [None]
  - COORDINATION ABNORMAL [None]
